FAERS Safety Report 11787707 (Version 2)
Quarter: 2016Q1

REPORT INFORMATION
  Report Type: Spontaneous
  Country: GB (occurrence: GB)
  Receive Date: 20151130
  Receipt Date: 20160119
  Transmission Date: 20160525
  Serious: Yes (Hospitalization)
  Sender: FDA-Public Use
  Company Number: PHHY2015GB152140

PATIENT
  Sex: Female

DRUGS (1)
  1. ADOPORT [Suspect]
     Active Substance: TACROLIMUS
     Indication: IMMUNOSUPPRESSION
     Dosage: 0.5 MG, UNK
     Route: 065

REACTIONS (3)
  - Gastrointestinal haemorrhage [Unknown]
  - Fluid overload [Unknown]
  - Gastrointestinal erosion [Unknown]
